FAERS Safety Report 7356652-X (Version None)
Quarter: 2011Q1

REPORT INFORMATION
  Report Type: 
  Country: None (occurrence: None)
  Receive Date: 20110316
  Receipt Date: 20110309
  Transmission Date: 20110831
  Serious: Yes (Other)
  Sender: FDA-Public Use
  Company Number: CHPA2011US03797

PATIENT
  Age: 31 Year
  Sex: Female
  Weight: 61.224 kg

DRUGS (11)
  1. VICODIN [Concomitant]
     Indication: ANALGESIC THERAPY
     Dosage: 1 DF, TID
     Route: 048
  2. AMBIEN [Concomitant]
     Indication: INSOMNIA
     Dosage: 1 DF, QHS
     Route: 048
  3. BUSPIRONE HYDROCHLORIDE [Concomitant]
     Indication: ANXIETY
     Dosage: 2 DF, BID
     Route: 048
  4. ALBUTEROL SULFATE [Concomitant]
     Indication: ASTHMA
     Dosage: 2.5MG-3MG, BID
  5. IPRATROPIUM BROMIDE [Concomitant]
     Indication: ASTHMA
     Dosage: .5 MG, BID
  6. EXCEDRIN (MIGRAINE) [Suspect]
     Indication: ANALGESIC THERAPY
     Dosage: 2 DF, ONCE/SINGLE
     Route: 048
     Dates: start: 20110309, end: 20110309
  7. REMERON [Concomitant]
     Indication: DEPRESSION
     Dosage: 3 DF, QHS
     Route: 048
  8. VENTOLIN [Concomitant]
     Dosage: 2 PUFFS, QD, PRN
  9. LAMICTAL [Concomitant]
     Indication: MOOD SWINGS
     Dosage: 2 DF, QD
     Route: 048
  10. NYQUIL SINUS [Concomitant]
     Indication: SLEEP DISORDER
     Dosage: UNK, UNK
     Route: 048
     Dates: start: 20110309
  11. NYQUIL SINUS [Concomitant]
     Indication: SINUS CONGESTION

REACTIONS (13)
  - SOMNOLENCE [None]
  - SYNCOPE [None]
  - ABDOMINAL DISCOMFORT [None]
  - DIARRHOEA [None]
  - DIZZINESS [None]
  - TREMOR [None]
  - COUGH [None]
  - HYPOAESTHESIA [None]
  - HYPERHIDROSIS [None]
  - RHINORRHOEA [None]
  - ASTHENIA [None]
  - MALAISE [None]
  - SINUS CONGESTION [None]
